FAERS Safety Report 9775516 (Version 2)
Quarter: 2014Q1

REPORT INFORMATION
  Report Type: Report from Study
  Country: JP (occurrence: JP)
  Receive Date: 20131220
  Receipt Date: 20140317
  Transmission Date: 20141002
  Serious: Yes (Hospitalization)
  Sender: FDA-Public Use
  Company Number: JP-EISAI INC-E2090-03036-CLI-JP

PATIENT
  Age: 83 Year
  Sex: Male

DRUGS (7)
  1. ZONISAMIDE [Suspect]
     Indication: DEMENTIA WITH LEWY BODIES
     Route: 048
     Dates: start: 20130928, end: 20131216
  2. DONEPEZIL [Concomitant]
     Indication: DEMENTIA WITH LEWY BODIES
     Dosage: 5 MG DAILY
     Route: 048
  3. SENNOSIDE [Concomitant]
     Indication: DEMENTIA WITH LEWY BODIES
     Dosage: 24 MG DAILY
     Route: 048
  4. LONASEN [Concomitant]
     Indication: DEMENTIA WITH LEWY BODIES
     Dosage: 2 MG DAILY
     Route: 048
  5. VESICARE OD [Concomitant]
     Indication: DEMENTIA WITH LEWY BODIES
     Dosage: 2.5 MG DAILY
     Route: 048
  6. MADOPAR [Concomitant]
     Indication: DEMENTIA WITH LEWY BODIES
     Dosage: 450 MG DAILY
     Route: 048
  7. MOHRUS TAPE [Concomitant]
     Indication: BACK PAIN
     Dosage: UNKNOWN
     Dates: start: 20131122

REACTIONS (1)
  - Back pain [Recovering/Resolving]
